FAERS Safety Report 16410961 (Version 2)
Quarter: 2019Q2

REPORT INFORMATION
  Report Type: Report from Study
  Country: CA (occurrence: CA)
  Receive Date: 20190610
  Receipt Date: 20190624
  Transmission Date: 20190711
  Serious: Yes (Other)
  Sender: FDA-Public Use
  Company Number: CA-GLAXOSMITHKLINE-CA2019GSK082357

PATIENT
  Sex: Female

DRUGS (3)
  1. MEPOLIZUMAB [Suspect]
     Active Substance: MEPOLIZUMAB
     Dosage: 100 MG, Z (1 MONTH)
     Route: 042
  2. MEPOLIZUMAB [Suspect]
     Active Substance: MEPOLIZUMAB
     Dosage: 100 MG, Z (1 MONTH)
     Route: 042
  3. MEPOLIZUMAB [Suspect]
     Active Substance: MEPOLIZUMAB
     Indication: ASTHMA
     Dosage: 100 MG, Z, 1 MONTH
     Dates: start: 20181119

REACTIONS (8)
  - Arthralgia [Unknown]
  - Sinus congestion [Unknown]
  - Mucosal discolouration [Unknown]
  - Gingival bleeding [Not Recovered/Not Resolved]
  - Postoperative wound infection [Unknown]
  - Pain [Unknown]
  - Contusion [Unknown]
  - Rash [Not Recovered/Not Resolved]
